FAERS Safety Report 8014728-8 (Version None)
Quarter: 2011Q4

REPORT INFORMATION
  Report Type: 
  Country: None (occurrence: None)
  Receive Date: 20111229
  Receipt Date: 20111219
  Transmission Date: 20120403
  Serious: Yes (Death)
  Sender: FDA-Public Use
  Company Number: US-PFIZER INC-2011310316

PATIENT
  Age: 50 Year
  Sex: Male

DRUGS (2)
  1. ALPRAZOLAM [Suspect]
     Dosage: 0.25 MG, 60 TABLETS
     Route: 048
  2. COLCHICINE [Suspect]
     Dosage: 0.6 MG, 30 TABLETS
     Route: 048

REACTIONS (1)
  - COMPLETED SUICIDE [None]
